FAERS Safety Report 6521339-X (Version None)
Quarter: 2009Q4

REPORT INFORMATION
  Report Type: 
  Country: None (occurrence: None)
  Receive Date: 20091230
  Receipt Date: 20091222
  Transmission Date: 20100525
  Serious: Yes (Hospitalization, Other)
  Sender: FDA-Public Use
  Company Number: US-JNJFOC-20070806363

PATIENT
  Sex: Male
  Weight: 91.63 kg

DRUGS (12)
  1. DURAGESIC-100 [Suspect]
     Indication: PAIN
     Route: 062
  2. DURAGESIC-100 [Suspect]
     Route: 062
  3. DURAGESIC-100 [Suspect]
     Route: 062
  4. DURAGESIC-100 [Suspect]
     Route: 062
  5. SANDOZ FENTANYL TRANSDERMAL SYSTEM [Suspect]
     Indication: PAIN
     Route: 062
  6. SANDOZ FENTANYL TRANSDERMAL SYSTEM [Suspect]
     Route: 062
  7. FENTANYL [Suspect]
     Indication: PAIN
     Route: 062
  8. NEURONTIN [Concomitant]
     Indication: PAIN
     Route: 048
  9. CIPRO [Concomitant]
     Indication: INFECTION
     Route: 048
  10. BACLOFEN [Concomitant]
     Indication: MUSCLE RELAXANT THERAPY
     Route: 048
  11. KLONOPIN [Concomitant]
     Indication: MITRAL VALVE PROLAPSE
     Route: 048
  12. GABAPENTIN [Concomitant]
     Indication: PAIN
     Route: 048

REACTIONS (11)
  - CYST [None]
  - FALL [None]
  - FEELING ABNORMAL [None]
  - HIP FRACTURE [None]
  - INADEQUATE ANALGESIA [None]
  - INFECTION [None]
  - MUSCLE DISORDER [None]
  - OSTEOMYELITIS [None]
  - PAIN [None]
  - RESTLESS LEGS SYNDROME [None]
  - THERAPEUTIC RESPONSE DECREASED [None]
